FAERS Safety Report 6340562-0 (Version None)
Quarter: 2009Q3

REPORT INFORMATION
  Report Type: 
  Country: None (occurrence: None)
  Receive Date: 20090904
  Receipt Date: 20090831
  Transmission Date: 20100115
  Serious: Yes (Other)
  Sender: FDA-Public Use
  Company Number: US-JNJFOC-20090900809

PATIENT
  Sex: Female

DRUGS (2)
  1. DURAGESIC-100 [Suspect]
     Indication: BACK PAIN
     Route: 062
     Dates: start: 20030101
  2. XANAX [Concomitant]
     Indication: NEUROPATHY PERIPHERAL
     Dosage: AT SLEEP
     Route: 048

REACTIONS (3)
  - BACK PAIN [None]
  - EPILEPSY [None]
  - INCORRECT DRUG ADMINISTRATION DURATION [None]
